FAERS Safety Report 23836059 (Version 1)
Quarter: 2024Q2

REPORT INFORMATION
  Report Type: Spontaneous
  Country: CA (occurrence: CA)
  Receive Date: 20240509
  Receipt Date: 20240509
  Transmission Date: 20240716
  Serious: Yes (Other)
  Sender: FDA-Public Use
  Company Number: CA-TEVA-VS-3196189

PATIENT
  Age: 35 Year
  Sex: Female

DRUGS (2)
  1. CINACALCET HYDROCHLORIDE [Suspect]
     Active Substance: CINACALCET HYDROCHLORIDE
     Indication: Hyperparathyroidism
     Route: 065
  2. CALCITONIN [Concomitant]
     Active Substance: CALCITONIN
     Indication: Product used for unknown indication
     Route: 065

REACTIONS (9)
  - Hypercalcaemia [Unknown]
  - Hypocalcaemia [Unknown]
  - Hypoparathyroidism [Unknown]
  - Neurological symptom [Unknown]
  - Placental insufficiency [Unknown]
  - Premature delivery [Unknown]
  - Blood parathyroid hormone increased [Unknown]
  - Maternal exposure during pregnancy [Unknown]
  - Therapy non-responder [Unknown]
